FAERS Safety Report 6846565-1 (Version None)
Quarter: 2010Q3

REPORT INFORMATION
  Report Type: 
  Country: None (occurrence: None)
  Receive Date: 20100715
  Receipt Date: 20070918
  Transmission Date: 20110219
  Serious: No
  Sender: FDA-Public Use
  Company Number: US-PFIZER INC-2007078582

PATIENT
  Sex: Male

DRUGS (1)
  1. CHANTIX [Suspect]
     Dates: end: 20070914

REACTIONS (5)
  - ASTHENIA [None]
  - CHEST PAIN [None]
  - LISTLESS [None]
  - NAUSEA [None]
  - PALPITATIONS [None]
